FAERS Safety Report 18000232 (Version 2)
Quarter: 2020Q3

REPORT INFORMATION
  Report Type: Spontaneous
  Country: US (occurrence: US)
  Receive Date: 20200709
  Receipt Date: 20200910
  Transmission Date: 20201103
  Serious: No
  Sender: FDA-Public Use
  Company Number: US-ASTRAZENECA-2020SE84938

PATIENT
  Sex: Male

DRUGS (1)
  1. BYDUREON [Suspect]
     Active Substance: EXENATIDE
     Indication: DIABETES MELLITUS
     Route: 058
     Dates: start: 2013

REACTIONS (4)
  - Injury associated with device [Not Recovered/Not Resolved]
  - Device malfunction [Unknown]
  - Drug dose omission by device [Not Recovered/Not Resolved]
  - Device use issue [Unknown]
